FAERS Safety Report 12753384 (Version 1)
Quarter: 2016Q3

REPORT INFORMATION
  Report Type: Spontaneous
  Country: IN (occurrence: IN)
  Receive Date: 20160916
  Receipt Date: 20160916
  Transmission Date: 20161109
  Serious: Yes (Hospitalization)
  Sender: FDA-Public Use
  Company Number: IN-LUPIN PHARMACEUTICALS INC.-E2B_00004686

PATIENT
  Sex: 0

DRUGS (1)
  1. CEFUROXIME INJECTION (CETIL LU.) [Suspect]
     Active Substance: CEFUROXIME
     Indication: OSTEOMYELITIS
     Route: 058
     Dates: start: 20151217, end: 20151217

REACTIONS (1)
  - Vomiting [Recovered/Resolved]

NARRATIVE: CASE EVENT DATE: 20151217
